FAERS Safety Report 4852315-0 (Version None)
Quarter: 2005Q4

REPORT INFORMATION
  Report Type: 
  Country: None (occurrence: None)
  Receive Date: 20051213
  Receipt Date: 20051202
  Transmission Date: 20060501
  Serious: Yes (Other)
  Sender: FDA-Public Use
  Company Number: GB-GLAXOSMITHKLINE-B0403215A

PATIENT
  Sex: Female

DRUGS (2)
  1. NIQUITIN CQ 21MG [Suspect]
     Route: 062
  2. INSULIN [Concomitant]

REACTIONS (1)
  - HYPOGLYCAEMIA [None]
